FAERS Safety Report 9144249 (Version 2)
Quarter: 2013Q1

REPORT INFORMATION
  Report Type: Report from Study
  Country: US (occurrence: US)
  Receive Date: 20130306
  Receipt Date: 20130318
  Transmission Date: 20140127
  Serious: Yes (Hospitalization)
  Sender: FDA-Public Use
  Company Number: US-FRI-1000042923

PATIENT
  Age: 46 Year
  Sex: Female
  Weight: 80.3 kg

DRUGS (2)
  1. VILAZODONE [Suspect]
     Indication: DEPRESSION
     Dosage: 20 MG
     Route: 048
     Dates: start: 20130213, end: 20130224
  2. ADVIL [Concomitant]
     Indication: PLANTAR FASCIITIS
     Dates: start: 2009

REACTIONS (1)
  - Dizziness [Recovering/Resolving]
